FAERS Safety Report 7259237-9 (Version None)
Quarter: 2011Q1

REPORT INFORMATION
  Report Type: 
  Country: None (occurrence: None)
  Receive Date: 20110129
  Receipt Date: 20100812
  Transmission Date: 20110831
  Serious: No
  Sender: FDA-Public Use
  Company Number: US-ABBOTT-10P-163-0664128-00

PATIENT
  Sex: Female
  Weight: 58.112 kg

DRUGS (2)
  1. HUMIRA [Suspect]
     Indication: PSORIASIS
     Dosage: ON HOLD
     Dates: start: 20090621
  2. TYLENOL-500 [Concomitant]
     Indication: DISCOMFORT

REACTIONS (2)
  - MENORRHAGIA [None]
  - GINGIVAL BLEEDING [None]
